FAERS Safety Report 7583870-8 (Version None)
Quarter: 2011Q2

REPORT INFORMATION
  Report Type: 
  Country: None (occurrence: None)
  Receive Date: 20110531
  Receipt Date: 20100427
  Transmission Date: 20111010
  Serious: Yes (Hospitalization, Other)
  Sender: FDA-Public Use
  Company Number: 245689

PATIENT
  Age: 56 Year
  Sex: Female
  Weight: 58 kg

DRUGS (13)
  1. DOXMINE (DOXYLAMINE SUCCINATE, PYRIDOXINE HYDROCHLORIDE) [Concomitant]
  2. PREMARIN [Suspect]
     Indication: MENOPAUSAL SYMPTOMS
     Dosage: 0.625 MG
     Dates: start: 19960701, end: 19960701
  3. FAMVIR /01226201/ (FAMCICLOVIR) [Concomitant]
  4. DURADRIN (DICHLORALPHENAZONE, ISOMETHEPTENE MUCATE, PARACETAMOL) [Concomitant]
  5. PREMPRO [Suspect]
     Indication: MENOPAUSAL SYMPTOMS
     Dosage: 0.625/2.5 MG
     Dates: start: 19970801, end: 20020601
  6. LOESTRIN 1/10 FE [Suspect]
     Indication: MENOPAUSAL SYMPTOMS
     Dates: start: 19960701, end: 19960701
  7. SERZONE [Concomitant]
  8. PROVERA [Suspect]
     Indication: MENOPAUSAL SYMPTOMS
     Dosage: 2.5 MG
     Dates: start: 19960801, end: 19970801
  9. PREMARIN [Suspect]
     Indication: MENOPAUSAL SYMPTOMS
     Dates: start: 20010601, end: 20010601
  10. IMITREX /01044801/ (SUMATRIPTAN) [Concomitant]
  11. ACTIVELLA [Suspect]
     Indication: MENOPAUSAL SYMPTOMS
     Dosage: 1.0/0.5 MG
     Dates: start: 20020601, end: 20030701
  12. ESTRACE [Suspect]
     Indication: MENOPAUSAL SYMPTOMS
     Dosage: 1 MG
     Dates: start: 19960801, end: 19970801
  13. MDRIN /00450801/ (DICHLORALPHENAZONE ,ISOMETHEPTENE, PARACETAMOL) [Concomitant]

REACTIONS (1)
  - BREAST CANCER [None]
